FAERS Safety Report 15202307 (Version 3)
Quarter: 2018Q4

REPORT INFORMATION
  Report Type: Report from Study
  Country: US (occurrence: US)
  Receive Date: 20180726
  Receipt Date: 20181117
  Transmission Date: 20190204
  Serious: No
  Sender: FDA-Public Use
  Company Number: PHEH2018US030104

PATIENT
  Sex: Female

DRUGS (1)
  1. ENTRESTO [Suspect]
     Active Substance: SACUBITRIL\VALSARTAN
     Indication: PRODUCT USED FOR UNKNOWN INDICATION
     Dosage: UNK
     Route: 048

REACTIONS (7)
  - Weight decreased [Unknown]
  - Arthralgia [Unknown]
  - Eye irritation [Unknown]
  - Decreased appetite [Unknown]
  - Blood pressure increased [Unknown]
  - Eye pain [Unknown]
  - Myalgia [Unknown]
